FAERS Safety Report 4568880-7 (Version None)
Quarter: 2005Q1

REPORT INFORMATION
  Report Type: 
  Country: None (occurrence: None)
  Receive Date: 20050113
  Receipt Date: 20050113
  Transmission Date: 20050727
  Serious: No
  Sender: FDA-Public Use
  Company Number: None

PATIENT
  Sex: Female
  Weight: 37.6486 kg

DRUGS (3)
  1. PERCOCET-5 [Suspect]
     Indication: COMPRESSION FRACTURE
     Dosage: Q ONE TAB PO TID
     Route: 048
     Dates: start: 20040913, end: 20050913
  2. PERCOCET-5 [Suspect]
     Indication: OSTEOARTHRITIS
     Dosage: Q ONE TAB PO TID
     Route: 048
     Dates: start: 20040913, end: 20050913
  3. PERCOCET-5 [Suspect]
     Indication: PAIN
     Dosage: Q ONE TAB PO TID
     Route: 048
     Dates: start: 20040913, end: 20050913

REACTIONS (3)
  - NAUSEA [None]
  - PHARMACEUTICAL PRODUCT COMPLAINT [None]
  - VOMITING [None]
